FAERS Safety Report 19021765 (Version 1)
Quarter: 2021Q1

REPORT INFORMATION
  Report Type: Spontaneous
  Country: CN (occurrence: CN)
  Receive Date: 20210317
  Receipt Date: 20210317
  Transmission Date: 20210420
  Serious: Yes (Hospitalization)
  Sender: FDA-Public Use
  Company Number: CN-EISAI MEDICAL RESEARCH-EC-2021-089515

PATIENT
  Age: 74 Year
  Sex: Male
  Weight: 71 kg

DRUGS (4)
  1. LENVIMA [Suspect]
     Active Substance: LENVATINIB
     Indication: HEPATIC CANCER
     Route: 048
     Dates: start: 20201217, end: 20210124
  2. CAMRELIZUMAB [Suspect]
     Active Substance: CAMRELIZUMAB
     Indication: HEPATIC CANCER
     Route: 041
     Dates: start: 20201217, end: 20201217
  3. CAMRELIZUMAB [Suspect]
     Active Substance: CAMRELIZUMAB
     Indication: HEPATIC CIRRHOSIS
  4. ENOXAPARIN SODIUM. [Suspect]
     Active Substance: ENOXAPARIN SODIUM
     Indication: VENOUS THROMBOSIS LIMB
     Route: 058
     Dates: start: 20210118, end: 20210124

REACTIONS (1)
  - Hepatic haemorrhage [Recovered/Resolved]

NARRATIVE: CASE EVENT DATE: 20210123
